FAERS Safety Report 6159174-7 (Version None)
Quarter: 2009Q2

REPORT INFORMATION
  Report Type: 
  Country: None (occurrence: None)
  Receive Date: 20090414
  Receipt Date: 20090402
  Transmission Date: 20091009
  Serious: Yes (Disabling)
  Sender: FDA-Public Use
  Company Number: TUK2009A00060

PATIENT
  Age: 57 Year
  Sex: Male

DRUGS (3)
  1. ACTOS [Suspect]
     Indication: DIABETES MELLITUS
     Dosage: 15 MG ORAL
     Route: 048
     Dates: start: 20081003, end: 20090224
  2. METFORMIN HCL [Concomitant]
  3. SIMVASTATIN [Concomitant]

REACTIONS (2)
  - CHEST PAIN [None]
  - DYSPEPSIA [None]
